FAERS Safety Report 4299218-0 (Version None)
Quarter: 2004Q1

REPORT INFORMATION
  Report Type: 
  Country: None (occurrence: None)
  Receive Date: 20040217
  Receipt Date: 20040203
  Transmission Date: 20041129
  Serious: Yes (Hospitalization, Disabling, Other)
  Sender: FDA-Public Use
  Company Number: 001-0945-M0200657

PATIENT
  Age: 44 Year
  Sex: Female
  Weight: 54.4316 kg

DRUGS (28)
  1. NEURONTIN [Suspect]
     Indication: BIPOLAR DISORDER
     Dosage: 1800 MG (DAILY), ORAL
     Route: 048
     Dates: start: 20000101, end: 20020401
  2. LAMOTRIGINE [Concomitant]
  3. LITHIUM CARBONATE [Concomitant]
  4. CLONAZEPAM [Concomitant]
  5. METHYLPHENIDATE HYDROCHLORIDE (METHYLPHENIDATE HYDROCHLORIDE) [Concomitant]
  6. LEVOTHYROXINE SODIUM [Concomitant]
  7. LIOTHYRONINE SODIUM [Concomitant]
  8. SERTRALINE HCL [Concomitant]
  9. PILOCARPINE HYDROCHLORIDE (PILOCARPINE HYDROCHLORIDE) [Concomitant]
  10. METOPROLOL SUCCINATE [Concomitant]
  11. LANSOPRAZOLE [Concomitant]
  12. HYOSCYAMINE SULFATE AND PHENOBARBITAL [Concomitant]
  13. DILTIAZEM HYDROCHLORIDE [Concomitant]
  14. BUPROPION HYDROCHLORIDE [Concomitant]
  15. CELEBREX [Concomitant]
  16. QUETIAPINE FUMARATE (QUETIAPINE FUMARATE) [Concomitant]
  17. METOPROLOL TARTRATE [Concomitant]
  18. CITALOPRAM HYDROBROMIDE (CITALOPRAM HYDROBROMIDE) [Concomitant]
  19. OLANZAPINE [Concomitant]
  20. OMEPRAZOLE [Concomitant]
  21. NASAL PREPARATIONS [Concomitant]
  22. NEFAZODONE HYDROCHLORIDE (NEFAZODONE HYDROCHLORIDE) [Concomitant]
  23. TOTOLIN (GUAIFENESIN, PHENYLPROPANOLAMINE HYDROCHLORIDE) [Concomitant]
  24. MECLOZINE (MECLOZINE) [Concomitant]
  25. FLUTICASONE PROPIONATE [Concomitant]
  26. TRIMETHOBENZAMIDE HYDROCHLORIDE (TRIMETHOBENZAMIDE HYDROCHLORIDE) [Concomitant]
  27. RESPAIRE-SR-120 (GUAIFENESIN, PSEUDOEPHEDRINE HYDROCHLORIDE) [Concomitant]
  28. RISPERIDONE [Concomitant]

REACTIONS (46)
  - ABDOMINAL PAIN UPPER [None]
  - ANIMAL BITE [None]
  - ANOREXIA [None]
  - ASTHENIA [None]
  - BRONCHITIS [None]
  - CELLULITIS [None]
  - COUGH [None]
  - CYST RUPTURE [None]
  - DEPRESSION [None]
  - DRUG HYPERSENSITIVITY [None]
  - DRY MOUTH [None]
  - DYSPHAGIA [None]
  - DYSURIA [None]
  - EAR PAIN [None]
  - FACIAL PAIN [None]
  - FATIGUE [None]
  - GRANULOMA [None]
  - HEADACHE [None]
  - HYPOTHYROIDISM [None]
  - INSOMNIA [None]
  - LACERATION [None]
  - LOCALISED INFECTION [None]
  - LOSS OF CONSCIOUSNESS [None]
  - MANIA [None]
  - NAUSEA [None]
  - OVARIAN MASS [None]
  - PELVIC INFLAMMATORY DISEASE [None]
  - PHARYNGOLARYNGEAL PAIN [None]
  - PYREXIA [None]
  - RASH [None]
  - RHINITIS ALLERGIC [None]
  - SIALOADENITIS [None]
  - SKIN CANDIDA [None]
  - SOMNOLENCE [None]
  - SPEECH DISORDER [None]
  - SWOLLEN TONGUE [None]
  - TARDIVE DYSKINESIA [None]
  - THIRST [None]
  - TONGUE BLISTERING [None]
  - TONGUE DISORDER [None]
  - TUBO-OVARIAN ABSCESS [None]
  - URINARY TRACT INFECTION [None]
  - VERTIGO [None]
  - VESTIBULITIS [None]
  - VIRAL INFECTION [None]
  - WEIGHT DECREASED [None]
